FAERS Safety Report 6024515-8 (Version None)
Quarter: 2008Q4

REPORT INFORMATION
  Report Type: 
  Country: None (occurrence: None)
  Receive Date: 20081231
  Receipt Date: 20080925
  Transmission Date: 20090506
  Serious: No
  Sender: FDA-Public Use
  Company Number: US-BRISTOL-MYERS SQUIBB COMPANY-14348130

PATIENT
  Age: 67 Year
  Sex: Female
  Weight: 64 kg

DRUGS (4)
  1. ORENCIA [Suspect]
     Indication: RHEUMATOID ARTHRITIS
     Dosage: NO OF INFUSION: 2
     Dates: start: 20080801
  2. ATENOLOL [Concomitant]
  3. ATIVAN [Concomitant]
  4. THYROID TAB [Concomitant]

REACTIONS (3)
  - CHEST PAIN [None]
  - DERMATITIS [None]
  - PRURITUS [None]
